FAERS Safety Report 6032525-X (Version None)
Quarter: 2009Q1

REPORT INFORMATION
  Report Type: 
  Country: None (occurrence: None)
  Receive Date: 20090109
  Receipt Date: 20081112
  Transmission Date: 20090719
  Serious: No
  Sender: FDA-Public Use
  Company Number: A0755984A

PATIENT

DRUGS (2)
  1. TYKERB [Suspect]
     Indication: DRUG USE FOR UNKNOWN INDICATION
     Route: 065
  2. UNKNOWN [Concomitant]

REACTIONS (1)
  - DIARRHOEA [None]
